FAERS Safety Report 5839277-4 (Version None)
Quarter: 2008Q3

REPORT INFORMATION
  Report Type: 
  Country: None (occurrence: None)
  Receive Date: 20080806
  Receipt Date: 20080716
  Transmission Date: 20090109
  Serious: Yes (Other)
  Sender: FDA-Public Use
  Company Number: GAM-137-08-AU

PATIENT
  Age: 46 Year
  Sex: Female

DRUGS (6)
  1. OCTAGAM [Suspect]
     Indication: CHRONIC INFLAMMATORY DEMYELINATING POLYRADICULONEUROPATHY
     Dosage: I.V.
     Route: 042
     Dates: start: 20071012, end: 20071016
  2. OCTAGAM [Suspect]
  3. INTRAGAM (HUMAN NORMAL IMMUNOGLOBULIN FOR INTRAVENOUS ADMINISTRATION) [Suspect]
     Indication: CHRONIC INFLAMMATORY DEMYELINATING POLYRADICULONEUROPATHY
     Dosage: I.V.
     Route: 042
  4. CELEXANE (ENOXAPARIN SODIUM) [Concomitant]
  5. LEVEMIR [Concomitant]
  6. NOVORAPID (INSULIN) [Concomitant]

REACTIONS (1)
  - HEPATITIS C POSITIVE [None]
